FAERS Safety Report 7527862-3 (Version None)
Quarter: 2011Q2

REPORT INFORMATION
  Report Type: 
  Country: None (occurrence: None)
  Receive Date: 20110513
  Receipt Date: 20100430
  Transmission Date: 20111010
  Serious: Yes (Hospitalization, Other)
  Sender: FDA-Public Use
  Company Number: 2010PL000061

PATIENT
  Age: 14 Year
  Sex: Female
  Weight: 33.5208 kg

DRUGS (2)
  1. IMURAN [Suspect]
     Indication: JUVENILE ARTHRITIS
     Dosage: 75 MG;QD
  2. INFLIXIMAB [Suspect]
     Indication: JUVENILE ARTHRITIS
     Dosage: 380 MG;Q4WK;IV
     Route: 042
     Dates: start: 20060701

REACTIONS (3)
  - EAR INFECTION [None]
  - LYMPHADENITIS BACTERIAL [None]
  - PHARYNGITIS BACTERIAL [None]
